FAERS Safety Report 8151919-X (Version None)
Quarter: 2012Q1

REPORT INFORMATION
  Report Type: 
  Country: None (occurrence: None)
  Receive Date: 20120221
  Receipt Date: 20120217
  Transmission Date: 20120608
  Serious: No
  Sender: FDA-Public Use
  Company Number: US-PFIZER INC-2012043609

PATIENT
  Sex: Female

DRUGS (3)
  1. QUINAPRIL [Concomitant]
     Indication: HYPERTENSION
     Dosage: UNK
  2. IBUPROFEN (ADVIL) [Suspect]
     Indication: TOOTHACHE
     Dosage: 200 MG, 1X/DAY
     Route: 048
     Dates: start: 20120201, end: 20120216
  3. CARVEDILOL [Concomitant]
     Indication: HYPERTENSION
     Dosage: UNK

REACTIONS (7)
  - CRYING [None]
  - RASH [None]
  - PAIN [None]
  - FEAR [None]
  - PRURITUS [None]
  - ERYTHEMA [None]
  - FEELING ABNORMAL [None]
